FAERS Safety Report 9028089 (Version 1)
Quarter: 2013Q1

REPORT INFORMATION
  Report Type: Spontaneous
  Country: US (occurrence: None)
  Receive Date: 20130114
  Receipt Date: 20130114
  Transmission Date: 20140127
  Serious: No
  Sender: FDA-Public Use
  Company Number: None

PATIENT
  Sex: Male
  Weight: 48.08 kg

DRUGS (2)
  1. MONTELUKAST [Suspect]
     Indication: ASTHMA
     Dosage: 5 MG DAILY PO
     Route: 048
     Dates: start: 201211
  2. MONTELUKAST [Suspect]
     Indication: RHINITIS ALLERGIC
     Dosage: 5 MG DAILY PO
     Route: 048
     Dates: start: 201211

REACTIONS (2)
  - Abdominal pain [None]
  - Nausea [None]
